FAERS Safety Report 9405224 (Version 1)
Quarter: 2013Q3

REPORT INFORMATION
  Report Type: Report from Study
  Country: NZ (occurrence: NZ)
  Receive Date: 20130717
  Receipt Date: 20130717
  Transmission Date: 20140515
  Serious: Yes (Other)
  Sender: FDA-Public Use
  Company Number: PHHY2013NZ074441

PATIENT
  Age: 42 Year
  Sex: Male

DRUGS (4)
  1. CLOZAPINE [Suspect]
     Dosage: UNK
     Route: 048
     Dates: start: 201303
  2. CLOMIPRAMINE [Suspect]
     Dosage: UNK
     Route: 048
  3. AMITRIPTYLINE [Suspect]
     Route: 048
  4. BUSPIRONE [Concomitant]
     Dosage: UNK
     Dates: start: 201303

REACTIONS (3)
  - Electrocardiogram QT prolonged [Unknown]
  - Convulsion [Unknown]
  - Hypocalcaemia [Unknown]
